FAERS Safety Report 7760211-4 (Version None)
Quarter: 2011Q3

REPORT INFORMATION
  Report Type: 
  Country: None (occurrence: None)
  Receive Date: 20110919
  Receipt Date: 20110919
  Transmission Date: 20111222
  Serious: Yes (Hospitalization)
  Sender: FDA-Public Use
  Company Number: US-GLAXOSMITHKLINE-A0905955A

PATIENT
  Age: 57 Year
  Sex: Male

DRUGS (1)
  1. AVANDIA [Suspect]
     Indication: DIABETES MELLITUS
     Route: 048
     Dates: end: 20070701

REACTIONS (7)
  - MYOCARDIAL INFARCTION [None]
  - CORONARY ARTERY DISEASE [None]
  - RENAL DISORDER [None]
  - DYSPNOEA [None]
  - CHEST PAIN [None]
  - FATIGUE [None]
  - LUNG DISORDER [None]
